FAERS Safety Report 25895923 (Version 2)
Quarter: 2025Q4

REPORT INFORMATION
  Report Type: Spontaneous
  Country: SA (occurrence: SA)
  Receive Date: 20251008
  Receipt Date: 20251013
  Transmission Date: 20260117
  Serious: Yes (Other)
  Sender: PFIZER
  Company Number: SA-MLMSERVICE-20250925-PI658173-00128-1

PATIENT
  Age: 45 Year
  Sex: Female

DRUGS (10)
  1. RITUXIMAB [Suspect]
     Active Substance: RITUXIMAB
     Indication: Thyroid B-cell lymphoma
     Dosage: UNK, CYCLIC (SIX CYCLES)
  2. RITUXIMAB [Suspect]
     Active Substance: RITUXIMAB
     Indication: Papillary thyroid cancer
  3. VINCRISTINE SULFATE [Suspect]
     Active Substance: VINCRISTINE SULFATE
     Indication: Thyroid B-cell lymphoma
     Dosage: UNK, CYCLIC (SIX CYCLES)
  4. VINCRISTINE SULFATE [Suspect]
     Active Substance: VINCRISTINE SULFATE
     Indication: Papillary thyroid cancer
  5. CYCLOPHOSPHAMIDE [Suspect]
     Active Substance: CYCLOPHOSPHAMIDE
     Indication: Thyroid B-cell lymphoma
     Dosage: UNK, CYCLIC (SIX CYCLES)
  6. CYCLOPHOSPHAMIDE [Suspect]
     Active Substance: CYCLOPHOSPHAMIDE
     Indication: Papillary thyroid cancer
  7. DOXORUBICIN [Suspect]
     Active Substance: DOXORUBICIN
     Indication: Thyroid B-cell lymphoma
     Dosage: UNK, CYCLIC (SIX CYCLES)
  8. DOXORUBICIN [Suspect]
     Active Substance: DOXORUBICIN
     Indication: Papillary thyroid cancer
  9. PREDNISONE [Suspect]
     Active Substance: PREDNISONE
     Indication: Thyroid B-cell lymphoma
     Dosage: UNK, CYCLIC (SIX CYCLES)
  10. PREDNISONE [Suspect]
     Active Substance: PREDNISONE
     Indication: Papillary thyroid cancer

REACTIONS (3)
  - Haematotoxicity [Recovering/Resolving]
  - Off label use [Unknown]
  - Drug effective for unapproved indication [Unknown]
